FAERS Safety Report 4581266-4 (Version None)
Quarter: 2005Q1

REPORT INFORMATION
  Report Type: 
  Country: None (occurrence: None)
  Receive Date: 20050127
  Receipt Date: 20040820
  Transmission Date: 20050727
  Serious: No
  Sender: FDA-Public Use
  Company Number: USA040876140

PATIENT
  Age: 9 Year
  Sex: Male
  Weight: 32 kg

DRUGS (6)
  1. STRATTERA [Suspect]
     Indication: ATTENTION DEFICIT/HYPERACTIVITY DISORDER
     Dosage: 30 MG DAY
  2. SINGULAIR (MONTELUKAST) [Concomitant]
  3. ZYRTEC [Concomitant]
  4. ADDERALL 10 [Concomitant]
  5. ALBUTEROL [Concomitant]
  6. BUDESONIDE [Concomitant]

REACTIONS (6)
  - AGGRESSION [None]
  - DYSPNOEA [None]
  - INSOMNIA [None]
  - MULTIPLE ALLERGIES [None]
  - PARANOIA [None]
  - SOMNOLENCE [None]
